FAERS Safety Report 7334340-3 (Version None)
Quarter: 2011Q1

REPORT INFORMATION
  Report Type: 
  Country: None (occurrence: None)
  Receive Date: 20110307
  Receipt Date: 20110214
  Transmission Date: 20110831
  Serious: No
  Sender: FDA-Public Use
  Company Number: US-B.I. PHARMACEUTICALS,INC./RIDGEFIELD-2011-BP-05441BP

PATIENT

DRUGS (5)
  1. CELEBREX [Concomitant]
     Indication: ARTHRITIS
  2. ULTRACET [Concomitant]
     Indication: ARTHRITIS
  3. CARDIZEM [Concomitant]
  4. INDEROL [Concomitant]
  5. PRADAXA [Suspect]
     Indication: ATRIAL FIBRILLATION
     Dosage: 300 MG
     Route: 048
     Dates: start: 20110210

REACTIONS (2)
  - ARTHRALGIA [None]
  - PYREXIA [None]
